FAERS Safety Report 4638014-9 (Version None)
Quarter: 2005Q2

REPORT INFORMATION
  Report Type: 
  Country: None (occurrence: None)
  Receive Date: 20050415
  Receipt Date: 20050405
  Transmission Date: 20051028
  Serious: Yes (Hospitalization)
  Sender: FDA-Public Use
  Company Number: 2005043370

PATIENT
  Age: 75 Year
  Sex: Female

DRUGS (2)
  1. HALCION [Suspect]
     Indication: INSOMNIA
     Dosage: ORAL
     Route: 048
  2. DIAZEPAM [Concomitant]

REACTIONS (2)
  - ABDOMINAL PAIN [None]
  - OVERDOSE [None]
